FAERS Safety Report 17568155 (Version 1)
Quarter: 2020Q1

REPORT INFORMATION
  Report Type: Spontaneous
  Country: CH (occurrence: CH)
  Receive Date: 20200320
  Receipt Date: 20200320
  Transmission Date: 20200409
  Serious: Yes (Congenital Anomaly, Other)
  Sender: FDA-Public Use
  Company Number: CH-PFIZER INC-2020116184

PATIENT
  Sex: Male
  Weight: 3.23 kg

DRUGS (8)
  1. TEMESTA [LORAZEPAM] [Suspect]
     Active Substance: LORAZEPAM
     Dosage: 2.5 MG, DAILY
     Route: 064
     Dates: start: 201910
  2. SEROQUEL [Suspect]
     Active Substance: QUETIAPINE FUMARATE
     Dosage: 25 MG, DAILY (DISCONTINUED AT PREGNANCY DIAGNOSIS)
     Route: 064
  3. XANAX [Suspect]
     Active Substance: ALPRAZOLAM
     Dosage: 0.5 MG, AS NEEDED
     Route: 064
     Dates: end: 201909
  4. SERTRALINE HCL [Suspect]
     Active Substance: SERTRALINE HYDROCHLORIDE
     Dosage: 100 MG, DAILY
     Route: 064
  5. XANAX [Suspect]
     Active Substance: ALPRAZOLAM
     Indication: DEPRESSION
     Dosage: 2 MG, AS NEEDED
     Route: 064
  6. CITALOPRAM [Suspect]
     Active Substance: CITALOPRAM HYDROBROMIDE
     Indication: DEPRESSION
     Dosage: 20 MG, 1X/DAY
     Route: 064
     Dates: end: 201909
  7. BRINTELLIX [Suspect]
     Active Substance: VORTIOXETINE HYDROBROMIDE
     Dosage: 20 MG, DAILY (DISCONTINUED AT PREGNANCY DIAGNOSIS)
     Route: 064
  8. SEROQUEL [Suspect]
     Active Substance: QUETIAPINE FUMARATE
     Dosage: 150 MG, DAILY (SEROQUEL RETARD, DISCONTINUED AT PREGNANCY DIAGNOSIS)
     Route: 064

REACTIONS (3)
  - Neonatal respiratory distress [Recovered/Resolved]
  - Maternal exposure during pregnancy [Recovered/Resolved]
  - Hypospadias [Unknown]

NARRATIVE: CASE EVENT DATE: 20200106
